FAERS Safety Report 5884226-6 (Version None)
Quarter: 2008Q3

REPORT INFORMATION
  Report Type: 
  Country: None (occurrence: None)
  Receive Date: 20080915
  Receipt Date: 20080911
  Transmission Date: 20090109
  Serious: Yes (Life-Threatening)
  Sender: FDA-Public Use
  Company Number: GB-B.I. PHARMACEUTICALS,INC./RIDGEFIELD-2008-UK-01551UK

PATIENT
  Age: 2 Year
  Sex: Male
  Weight: 13.3 kg

DRUGS (6)
  1. CLONIDINE [Suspect]
     Indication: SEDATION
     Dosage: .7MCG
     Route: 042
     Dates: start: 20080818, end: 20080819
  2. VECURONIUM BROMIDE [Suspect]
     Indication: LARYNGEAL STENOSIS
     Dosage: 100MCG
     Route: 042
     Dates: start: 20080819
  3. PENICILLIN G [Concomitant]
     Indication: INFECTION
     Dosage: 25MG
     Route: 042
     Dates: start: 20080816
  4. CHLORAL HYDRATE [Concomitant]
     Indication: SEDATION
     Dosage: 15MG 7/1 DAYS
  5. FRUSEMIDE [Concomitant]
     Dosage: .5MG
     Route: 042
     Dates: start: 20080816
  6. OMEPRAZOLE [Concomitant]
     Dosage: 20MG
     Route: 048

REACTIONS (2)
  - BRADYCARDIA [None]
  - CARDIAC ARREST [None]
